FAERS Safety Report 19207115 (Version 1)
Quarter: 2021Q2

REPORT INFORMATION
  Report Type: Spontaneous
  Country: US (occurrence: US)
  Receive Date: 20210430
  Receipt Date: 20210430
  Transmission Date: 20210717
  Serious: Yes (Other)
  Sender: FDA-Public Use
  Company Number: US-SEATTLE GENETICS-2021SGN02522

PATIENT
  Sex: Female

DRUGS (2)
  1. TUKYSA [Suspect]
     Active Substance: TUCATINIB
     Indication: PRODUCT USED FOR UNKNOWN INDICATION
     Dosage: UNK
     Route: 065
     Dates: start: 20200210
  2. XELODA [Concomitant]
     Active Substance: CAPECITABINE
     Dosage: UNK
     Dates: start: 20200210

REACTIONS (13)
  - Optic neuritis [Unknown]
  - White blood cell count decreased [Unknown]
  - Lymphadenopathy [Recovered/Resolved]
  - Eye disorder [Unknown]
  - Fatigue [Unknown]
  - Headache [Recovering/Resolving]
  - Brain oedema [Unknown]
  - Ill-defined disorder [Unknown]
  - Feeling abnormal [Unknown]
  - Pulmonary mass [Recovered/Resolved]
  - Dizziness [Unknown]
  - Osteogenesis imperfecta [Unknown]
  - Neutrophil count decreased [Unknown]
